FAERS Safety Report 12816982 (Version 1)
Quarter: 2016Q4

REPORT INFORMATION
  Report Type: Spontaneous
  Country: DE (occurrence: DE)
  Receive Date: 20161006
  Receipt Date: 20161006
  Transmission Date: 20170207
  Serious: No
  Sender: FDA-Public Use
  Company Number: DE-NOVEN PHARMACEUTICALS, INC.-DE2016000156

PATIENT

DRUGS (2)
  1. ESTRADIOL/NORETHISTERONE ACETATE [Suspect]
     Active Substance: ESTRADIOL\NORETHINDRONE ACETATE
     Indication: HORMONE LEVEL ABNORMAL
     Dosage: 1 DF, QD
     Route: 062
     Dates: end: 2013
  2. ESTRADIOL/NORETHISTERONE ACETATE [Suspect]
     Active Substance: ESTRADIOL\NORETHINDRONE ACETATE
     Indication: PRODUCT USED FOR UNKNOWN INDICATION
     Dosage: UNK, UNKNOWN
     Route: 062

REACTIONS (7)
  - Bone pain [Unknown]
  - Drug intolerance [Unknown]
  - Depression [Unknown]
  - Abdominal distension [Unknown]
  - Crying [Unknown]
  - Product use issue [Unknown]
  - Abdominal discomfort [Unknown]
